FAERS Safety Report 4988791-2 (Version None)
Quarter: 2006Q2

REPORT INFORMATION
  Report Type: 
  Country: None (occurrence: None)
  Receive Date: 20060502
  Receipt Date: 20060406
  Transmission Date: 20061013
  Serious: Yes (Death)
  Sender: FDA-Public Use
  Company Number: US-MERCK-0604USA01778

PATIENT
  Age: 61 Year
  Sex: Male
  Weight: 86 kg

DRUGS (16)
  1. VIOXX [Suspect]
     Indication: PAIN
     Route: 048
     Dates: start: 20030317, end: 20040104
  2. ELAVIL [Concomitant]
     Route: 065
  3. NEURONTIN [Concomitant]
     Route: 065
  4. LIPITOR [Concomitant]
     Route: 065
  5. VICODIN [Concomitant]
     Route: 065
  6. ZOLOFT [Concomitant]
     Route: 065
  7. RESTORIL [Concomitant]
     Route: 065
  8. DURAGESIC-100 [Concomitant]
     Route: 065
  9. SOMA [Concomitant]
     Route: 065
  10. OXYCONTIN [Concomitant]
     Route: 065
  11. AMITRIPTYLIN [Concomitant]
     Route: 065
  12. DOXEPIN HYDROCHLORIDE [Concomitant]
     Route: 065
  13. HYDROCODONE BITARTRATE [Concomitant]
     Route: 065
  14. TEMAZEPAM [Concomitant]
     Route: 065
  15. PREVACID [Concomitant]
     Route: 065
  16. DURAGESIC-100 [Concomitant]
     Route: 065

REACTIONS (2)
  - ARACHNOIDITIS [None]
  - CARDIO-RESPIRATORY ARREST [None]
